FAERS Safety Report 6732046-2 (Version None)
Quarter: 2010Q2

REPORT INFORMATION
  Report Type: 
  Country: None (occurrence: None)
  Receive Date: 20100519
  Receipt Date: 20100510
  Transmission Date: 20101027
  Serious: Yes (Hospitalization, Other)
  Sender: FDA-Public Use
  Company Number: CA-ASTRAZENECA-2010SE15698

PATIENT
  Age: 53 Year
  Sex: Female
  Weight: 61.7 kg

DRUGS (14)
  1. SEROQUEL [Suspect]
     Indication: GENERALISED ANXIETY DISORDER
     Route: 048
  2. SEROQUEL [Interacting]
     Route: 048
  3. PAXIL [Interacting]
     Indication: GENERALISED ANXIETY DISORDER
     Route: 048
  4. PAXIL [Interacting]
     Route: 048
  5. EFFEXOR [Concomitant]
     Route: 065
  6. NOVO PAROXETINE [Concomitant]
     Dates: start: 19980101
  7. SYNTHROID [Concomitant]
  8. NOVO-ALPRAZOL [Concomitant]
     Dosage: ONE TABLET THREE TIMES A DAY IF NEEDED
  9. RAN-PANTOPRAZOLE [Concomitant]
     Dosage: ONE TABLET ONCE A DAY IF NEEDED
  10. NOVO-CYCLOPRINE [Concomitant]
     Dosage: ONE TABLET THREE TIMES A DAY IF NEEDED
  11. TRAMACET [Concomitant]
     Dosage: ONE TABLET TWICE A DAY IF NEEDED
  12. MICARDIS [Concomitant]
  13. RATIO-FLUNISOLIDE [Concomitant]
     Dosage: ONE SPRAY INTO EACH NOSTRIL ONCE A DAY
  14. RATIO-SALBUTAMOL [Concomitant]
     Dosage: TWO INHALATION TWICE A DAY
     Route: 055

REACTIONS (4)
  - ALCOHOLISM [None]
  - DRUG INTERACTION [None]
  - HYPONATRAEMIA [None]
  - METABOLIC ENCEPHALOPATHY [None]
